FAERS Safety Report 10542957 (Version 1)
Quarter: 2014Q4

REPORT INFORMATION
  Report Type: Spontaneous
  Country: CO (occurrence: CO)
  Receive Date: 20141027
  Receipt Date: 20141027
  Transmission Date: 20150529
  Serious: Yes (Hospitalization, Other)
  Sender: FDA-Public Use
  Company Number: CO-UCBSA-2014015403

PATIENT
  Age: 19 Year
  Sex: Female

DRUGS (2)
  1. VIMPAT [Suspect]
     Active Substance: LACOSAMIDE
     Indication: EPILEPSY
     Dosage: 100 MG, 2X/DAY (BID), 2 EACH 12 HOURS
     Route: 048
     Dates: start: 20140402, end: 20140910
  2. VALPROIC ACID. [Concomitant]
     Active Substance: VALPROIC ACID
     Dosage: 250 MG, 2X/DAY (BID), 2 DOSES EACH 12 HOURS

REACTIONS (2)
  - Appendicitis [Unknown]
  - Peritonitis [Unknown]

NARRATIVE: CASE EVENT DATE: 20140909
